FAERS Safety Report 15559343 (Version 2)
Quarter: 2019Q1

REPORT INFORMATION
  Report Type: Spontaneous
  Country: US (occurrence: US)
  Receive Date: 20181029
  Receipt Date: 20190314
  Transmission Date: 20190417
  Serious: Yes (Other)
  Sender: FDA-Public Use
  Company Number: US-APOTEX-2018AP023370

PATIENT

DRUGS (8)
  1. IMIQUIMOD. [Suspect]
     Active Substance: IMIQUIMOD
     Indication: CUTANEOUS SARCOIDOSIS
     Dosage: THREE TIMES A WEEK
     Route: 065
  2. METHOTREXATE. [Suspect]
     Active Substance: METHOTREXATE
     Indication: CUTANEOUS SARCOIDOSIS
     Dosage: 5 MG, WEEKLY
     Route: 065
  3. METHOTREXATE. [Suspect]
     Active Substance: METHOTREXATE
     Dosage: 15 MG, WEEKLY
     Route: 065
  4. HYDROXYCHLOROQUINE [Suspect]
     Active Substance: HYDROXYCHLOROQUINE
     Indication: CUTANEOUS SARCOIDOSIS
     Dosage: 200 MG, BID
     Route: 065
  5. PIMECROLIMUS. [Suspect]
     Active Substance: PIMECROLIMUS
     Indication: PRURITUS
  6. IMIQUIMOD. [Suspect]
     Active Substance: IMIQUIMOD
     Indication: PAPILLOMA VIRAL INFECTION
  7. TRIAMCINOLONE [Suspect]
     Active Substance: TRIAMCINOLONE
     Indication: CUTANEOUS SARCOIDOSIS
     Dosage: UNK, UNKNOWN
     Route: 065
  8. PIMECROLIMUS. [Suspect]
     Active Substance: PIMECROLIMUS
     Indication: CUTANEOUS SARCOIDOSIS
     Dosage: UNK, BID
     Route: 061

REACTIONS (1)
  - Skin irritation [Recovered/Resolved]
